FAERS Safety Report 7131266-5 (Version None)
Quarter: 2010Q4

REPORT INFORMATION
  Report Type: 
  Country: None (occurrence: None)
  Receive Date: 20101201
  Receipt Date: 20101122
  Transmission Date: 20110411
  Serious: Yes (Other)
  Sender: FDA-Public Use
  Company Number: US-PFIZER INC-2010159204

PATIENT
  Sex: Male

DRUGS (4)
  1. ZYVOX [Suspect]
     Dosage: UNK
  2. PRIMAXIN [Concomitant]
  3. ATIVAN [Concomitant]
  4. DEMEROL [Concomitant]
     Dosage: UNK

REACTIONS (4)
  - CONFUSIONAL STATE [None]
  - CONVULSION [None]
  - DELIRIUM [None]
  - RESTLESSNESS [None]
